FAERS Safety Report 8779631 (Version 2)
Quarter: 2012Q4

REPORT INFORMATION
  Report Type: 
  Country: US (occurrence: US)
  Receive Date: 20120912
  Receipt Date: 20120912
  Transmission Date: 20130627
  Serious: No
  Sender: FDA-Public Use
  Company Number: US-MYLANLABS-2012S1011470

PATIENT
  Age: 71 Year
  Sex: Female

DRUGS (3)
  1. EPROSARTAN MESYLATE [Suspect]
     Indication: BLOOD PRESSURE INCREASED
     Route: 048
     Dates: start: 201204
  2. VITAMIN D [Concomitant]
     Dates: start: 201204
  3. VITAMIN K [Concomitant]
     Dates: start: 201204

REACTIONS (2)
  - Fatigue [Not Recovered/Not Resolved]
  - Pain [Not Recovered/Not Resolved]
